FAERS Safety Report 12916088 (Version 2)
Quarter: 2017Q1

REPORT INFORMATION
  Report Type: Spontaneous
  Country: US (occurrence: US)
  Receive Date: 20161104
  Receipt Date: 20170322
  Transmission Date: 20170428
  Serious: Yes (Hospitalization, Other)
  Sender: FDA-Public Use
  Company Number: US-SAOL THERAPEUTICS-2016SAO00977

PATIENT
  Age: 68 Year
  Sex: Male

DRUGS (19)
  1. PRILOSEC [Concomitant]
     Active Substance: OMEPRAZOLE MAGNESIUM
     Dosage: 20 MG, 1X/DAY
     Route: 048
  2. REQUIP [Concomitant]
     Active Substance: ROPINIROLE HYDROCHLORIDE
     Dosage: 1 MG, 3X/DAY
     Route: 048
  3. BACLOFEN. [Suspect]
     Active Substance: BACLOFEN
     Dosage: 330 ?G, \DAY
     Route: 037
     Dates: start: 20161028
  4. PRINIVIL [Concomitant]
     Active Substance: LISINOPRIL
     Dosage: 1 DOSAGE UNITS, \DAY
  5. BACLOFEN. [Suspect]
     Active Substance: BACLOFEN
     Indication: MUSCLE SPASTICITY
     Dosage: 230 ?G, \DAY
     Route: 037
     Dates: start: 2015, end: 20161027
  6. BACLOFEN. [Suspect]
     Active Substance: BACLOFEN
     Dosage: 275 ?G, \DAY
     Route: 037
     Dates: start: 20161027, end: 20161028
  7. HCTZ [Concomitant]
     Active Substance: HYDROCHLOROTHIAZIDE
     Dosage: 12.5 MG, 1X/DAY
     Route: 048
  8. DUCOSATE SODIUM [Concomitant]
     Dosage: UNK, AS NEEDED
  9. MVI [Concomitant]
     Active Substance: VITAMINS
     Dosage: UNK, 1X/DAY
     Route: 048
  10. TYLENOL [Concomitant]
     Active Substance: ACETAMINOPHEN
     Dosage: 325 MG  6X/DAY
     Route: 048
  11. IBUPROFEN. [Concomitant]
     Active Substance: IBUPROFEN
     Dosage: UNK, AS NEEDED
  12. BACLOFEN. [Suspect]
     Active Substance: BACLOFEN
     Indication: CEREBRAL PALSY
     Dosage: 235.7 ?G, \DAY
     Route: 037
     Dates: start: 20160815, end: 20161027
  13. LOPRESSOR [Concomitant]
     Active Substance: METOPROLOL TARTRATE
     Dosage: 75 MG, 3X/DAY
     Route: 048
  14. LIDODERM 5% PATCH [Concomitant]
     Dosage: UNK
     Route: 062
  15. PULMICORT TURBUHALER [Concomitant]
     Active Substance: BUDESONIDE
  16. ASPIRIN. [Concomitant]
     Active Substance: ASPIRIN
     Dosage: UNK, \DAY
  17. SENNOSIDES. [Concomitant]
     Active Substance: SENNOSIDES
     Dosage: UNK, AS NEEDED
  18. ZOCOR [Concomitant]
     Active Substance: SIMVASTATIN
     Dosage: 20 MG, 1X/DAY
     Route: 048
  19. FOLIC ACID. [Concomitant]
     Active Substance: FOLIC ACID
     Dosage: UNK, 1X/DAY
     Route: 048

REACTIONS (7)
  - Malaise [Recovered/Resolved]
  - Muscle spasticity [Unknown]
  - Pain [Recovered/Resolved]
  - Drug withdrawal syndrome [Recovered/Resolved]
  - Hyperhidrosis [Recovered/Resolved]
  - Drug titration error [Recovered/Resolved]
  - White blood cell count increased [Unknown]

NARRATIVE: CASE EVENT DATE: 2016
